FAERS Safety Report 11303894 (Version 1)
Quarter: 2015Q3

REPORT INFORMATION
  Report Type: Spontaneous
  Country: US (occurrence: US)
  Receive Date: 20150723
  Receipt Date: 20150723
  Transmission Date: 20151125
  Serious: No
  Sender: FDA-Public Use
  Company Number: US-JNJFOC-20140813818

PATIENT
  Age: 27 Year
  Sex: Female
  Weight: 118.84 kg

DRUGS (2)
  1. ZYRTEC [Suspect]
     Active Substance: CETIRIZINE HYDROCHLORIDE
     Route: 048
  2. ZYRTEC [Suspect]
     Active Substance: CETIRIZINE HYDROCHLORIDE
     Indication: URTICARIA CHOLINERGIC
     Dosage: NOT MORE THAN 3 TABLETS IN 24 HOURS
     Route: 048
     Dates: start: 20130317

REACTIONS (1)
  - Incorrect dose administered [Unknown]
